FAERS Safety Report 5906169-1 (Version None)
Quarter: 2008Q4

REPORT INFORMATION
  Report Type: 
  Country: None (occurrence: None)
  Receive Date: 20081002
  Receipt Date: 20080919
  Transmission Date: 20090506
  Serious: Yes (Death, Hospitalization)
  Sender: FDA-Public Use
  Company Number: US-BAYER-200827398GPV

PATIENT
  Age: 44 Year
  Sex: Male

DRUGS (10)
  1. CAMPATH [Suspect]
     Indication: RENAL TRANSPLANT
     Route: 042
     Dates: start: 20050301, end: 20050301
  2. CAMPATH [Suspect]
     Route: 042
     Dates: start: 20050101
  3. ACETAMINOPHEN [Concomitant]
     Indication: PREMEDICATION
  4. DIPHENHYDRAMINE HCL [Concomitant]
     Indication: PREMEDICATION
  5. METHYLPREDNISOLONE [Concomitant]
     Indication: PREMEDICATION
  6. VALCYTE [Concomitant]
     Indication: ANTIVIRAL PROPHYLAXIS
  7. MYCELEX [Concomitant]
     Indication: ANTIFUNGAL PROPHYLAXIS
  8. TRIMETHOPRIM + SULFAMETHOXAZOLE [Concomitant]
     Indication: ANTIFUNGAL PROPHYLAXIS
  9. PROGRAF [Concomitant]
     Indication: RENAL TRANSPLANT
  10. CELLCEPT [Concomitant]
     Indication: RENAL TRANSPLANT
     Dosage: TOTAL DAILY DOSE: 1000 MG
     Route: 048

REACTIONS (2)
  - DISSEMINATED TUBERCULOSIS [None]
  - MULTI-ORGAN FAILURE [None]
